FAERS Safety Report 9322855 (Version 1)
Quarter: 2013Q2

REPORT INFORMATION
  Report Type: Report from Study
  Country: GR (occurrence: GR)
  Receive Date: 20130601
  Receipt Date: 20130601
  Transmission Date: 20140414
  Serious: Yes (Hospitalization, Other)
  Sender: FDA-Public Use
  Company Number: GR-US-EMD SERONO, INC.-7214128

PATIENT
  Age: 25 Year
  Sex: Male

DRUGS (1)
  1. REBIF [Suspect]
     Indication: MULTIPLE SCLEROSIS
     Route: 058
     Dates: start: 2005

REACTIONS (2)
  - Multiple sclerosis relapse [Recovered/Resolved]
  - Diabetes mellitus [Not Recovered/Not Resolved]
